FAERS Safety Report 21576039 (Version 1)
Quarter: 2022Q4

REPORT INFORMATION
  Report Type: Report from Study
  Country: BR (occurrence: BR)
  Receive Date: 20221110
  Receipt Date: 20221110
  Transmission Date: 20230113
  Serious: Yes (Disabling, Other)
  Sender: FDA-Public Use
  Company Number: BR-CELLTRION INC.-2022BR018751

PATIENT

DRUGS (3)
  1. INFLIXIMAB [Suspect]
     Active Substance: INFLIXIMAB
     Indication: Crohn^s disease
     Dosage: 8 AMPOULES EVERY 1 MONTH AND 15 DAYS (STARTED ABOUT 1 YEAR AGO)
     Route: 042
  2. INFLIXIMAB [Suspect]
     Active Substance: INFLIXIMAB
     Dosage: 8 AMPOULES EVERY 1 MONTH AND 15 DAYS (STARTED ABOUT 1 YEAR AGO)
     Route: 042
     Dates: start: 20220926
  3. AZATHIOPRINE [Concomitant]
     Active Substance: AZATHIOPRINE
     Indication: Crohn^s disease
     Dosage: 3 PILLS PER DAY (START DATE WAS ABOUT 1 YEAR AGO)
     Route: 048

REACTIONS (5)
  - Crohn^s disease [Unknown]
  - Colitis [Unknown]
  - Impaired quality of life [Unknown]
  - Product prescribing issue [Unknown]
  - Off label use [Unknown]
